FAERS Safety Report 7742245-9 (Version None)
Quarter: 2011Q3

REPORT INFORMATION
  Report Type: 
  Country: None (occurrence: None)
  Receive Date: 20110901
  Receipt Date: 20110817
  Transmission Date: 20111222
  Serious: Yes (Hospitalization)
  Sender: FDA-Public Use
  Company Number: DSA_47430_2011

PATIENT
  Age: 41 Year
  Sex: Male

DRUGS (6)
  1. OMEPRAZOLE [Concomitant]
  2. ENALAPRIL MALEATE AND HYDROCHLOROTHIAZIDE [Suspect]
     Indication: HYPERTENSION
     Dosage: (DF ORAL)
     Route: 048
  3. TETRAZEPAM [Concomitant]
  4. SINGULAIR [Concomitant]
  5. EFFERALGAN /00020001/ [Concomitant]
  6. VOLTAREN [Suspect]
     Indication: SCIATICA
     Dosage: (DF ORAL)
     Route: 048
     Dates: start: 20110601, end: 20110625

REACTIONS (10)
  - BLOOD CULTURE POSITIVE [None]
  - NAUSEA [None]
  - HYPOTENSION [None]
  - PSYCHOMOTOR RETARDATION [None]
  - RENAL FAILURE ACUTE [None]
  - VOMITING [None]
  - STAPHYLOCOCCAL INFECTION [None]
  - ASTHENIA [None]
  - SOMNOLENCE [None]
  - HYPERKALAEMIA [None]
